FAERS Safety Report 5626520-X (Version None)
Quarter: 2008Q1

REPORT INFORMATION
  Report Type: 
  Country: None (occurrence: None)
  Receive Date: 20080214
  Receipt Date: 20080207
  Transmission Date: 20080703
  Serious: Yes (Other)
  Sender: FDA-Public Use
  Company Number: GB-AVENTIS-200811279GDDC

PATIENT
  Age: 10 Year
  Sex: Male

DRUGS (2)
  1. MINIRIN [Suspect]
     Route: 060
     Dates: start: 20080114, end: 20080116
  2. MINIRIN [Suspect]
     Route: 060
     Dates: start: 20080117, end: 20080120

REACTIONS (1)
  - RASH [None]
